FAERS Safety Report 10032553 (Version 4)
Quarter: 2014Q2

REPORT INFORMATION
  Report Type: Report from Study
  Country: CA (occurrence: CA)
  Receive Date: 20140324
  Receipt Date: 20140530
  Transmission Date: 20141212
  Serious: Yes (Other)
  Sender: FDA-Public Use
  Company Number: CA-BRISTOL-MYERS SQUIBB COMPANY-19364538

PATIENT
  Age: 68 Year
  Sex: Female

DRUGS (6)
  1. ORENCIA [Suspect]
     Indication: RHEUMATOID ARTHRITIS
     Dosage: BATCH:3J75953,3E73616; EXP:JUL16, MAR16. 1/4WEEK?INJ,POWD, LYOPHILI FO SLN 250 MG VIAL
     Route: 042
     Dates: start: 20130815, end: 20140308
  2. PREDNISONE [Concomitant]
  3. LYRICA [Concomitant]
  4. CODEINE [Concomitant]
  5. COMBIGAN [Concomitant]
  6. XALATAN [Concomitant]

REACTIONS (5)
  - Mass [Unknown]
  - Throat irritation [Recovered/Resolved]
  - Influenza [Recovered/Resolved]
  - Drug ineffective [Unknown]
  - Cyst [Unknown]
